FAERS Safety Report 14156055 (Version 15)
Quarter: 2018Q2

REPORT INFORMATION
  Report Type: Report from Study
  Country: None (occurrence: PL)
  Receive Date: 20171103
  Receipt Date: 20180515
  Transmission Date: 20180711
  Serious: Yes (Hospitalization, Other)
  Sender: FDA-Public Use
  Company Number: PL-BAUSCH-BL-2017-030816

PATIENT
  Age: 61 Year
  Sex: Male

DRUGS (10)
  1. DEXAVEN [Suspect]
     Active Substance: DEXAMETHASONE
     Indication: SPINAL CORD ISCHAEMIA
     Route: 042
  2. ENOXAPARIN [Suspect]
     Active Substance: ENOXAPARIN
     Indication: SPINAL CORD ISCHAEMIA
     Route: 065
  3. TISSUE PLASMINOGEN ACTIVATOR, RECOMBINATIVE [Concomitant]
     Active Substance: ALTEPLASE
     Indication: PRODUCT USED FOR UNKNOWN INDICATION
     Dosage: 90 MINUTES SINCE THE ONSET OF SYMPTOMS
     Route: 042
  4. RAMIPRIL. [Suspect]
     Active Substance: RAMIPRIL
     Indication: SPINAL CORD ISCHAEMIA
     Route: 048
  5. DEXAMETHASONE. [Suspect]
     Active Substance: DEXAMETHASONE
     Indication: SPINAL CORD ISCHAEMIA
     Route: 065
  6. ASPIRIN. [Suspect]
     Active Substance: ASPIRIN
     Indication: SPINAL CORD ISCHAEMIA
     Route: 065
  7. TORASEMIDE [Suspect]
     Active Substance: TORSEMIDE
     Indication: SPINAL CORD ISCHAEMIA
     Route: 065
  8. ACETYLSALICYLIC ACID [Suspect]
     Active Substance: ASPIRIN
     Indication: SPINAL CORD ISCHAEMIA
     Route: 065
  9. ATORVASTATIN [Suspect]
     Active Substance: ATORVASTATIN
     Indication: SPINAL CORD ISCHAEMIA
     Route: 065
  10. MANNITOL. [Suspect]
     Active Substance: MANNITOL
     Indication: SPINAL CORD ISCHAEMIA
     Route: 042

REACTIONS (1)
  - Paralysis [Recovered/Resolved]

NARRATIVE: CASE EVENT DATE: 20171025
